FAERS Safety Report 6027190-1 (Version None)
Quarter: 2009Q1

REPORT INFORMATION
  Report Type: 
  Country: None (occurrence: None)
  Receive Date: 20090105
  Receipt Date: 20081222
  Transmission Date: 20090719
  Serious: Yes (Hospitalization)
  Sender: FDA-Public Use
  Company Number: CA-AVENTIS-200821135GDDC

PATIENT
  Age: 26 Year
  Sex: Male

DRUGS (7)
  1. LANTUS [Suspect]
     Route: 058
     Dates: start: 20080926
  2. NAPROXEN [Suspect]
     Route: 048
     Dates: start: 20081007
  3. PREGABALIN [Suspect]
     Route: 048
     Dates: start: 20081007
  4. OLANZAPINE [Suspect]
     Indication: ANXIETY
     Route: 048
     Dates: start: 20081005
  5. OLANZAPINE [Suspect]
     Indication: HALLUCINATION
     Route: 048
     Dates: start: 20081005
  6. LORAZEPAM [Suspect]
     Indication: ANXIETY
     Route: 048
     Dates: start: 20081005
  7. HUMALOG [Concomitant]
     Route: 058
     Dates: start: 19960101

REACTIONS (8)
  - DYSPHAGIA [None]
  - GAIT DISTURBANCE [None]
  - HEADACHE [None]
  - PANIC ATTACK [None]
  - SOMATISATION DISORDER [None]
  - SPEECH DISORDER [None]
  - TREMOR [None]
  - VISUAL IMPAIRMENT [None]
